FAERS Safety Report 25273701 (Version 1)
Quarter: 2025Q2

REPORT INFORMATION
  Report Type: Spontaneous
  Country: US (occurrence: US)
  Receive Date: 20250506
  Receipt Date: 20250506
  Transmission Date: 20250716
  Serious: No
  Sender: MARIUS PHARMACEUTICALS
  Company Number: US-MARIUS PHARMACEUTICALS, LLC-2025US001151

PATIENT

DRUGS (1)
  1. KYZATREX [Suspect]
     Active Substance: TESTOSTERONE UNDECANOATE
     Indication: Blood testosterone decreased
     Dosage: 2 CAPSULES IN THE MORNING AND 2 CAPSULES FOR DINNER WITH FOOD (800 MG/DAY)
     Route: 048
     Dates: start: 202412, end: 20250304

REACTIONS (2)
  - Blood testosterone decreased [Not Recovered/Not Resolved]
  - Therapy non-responder [Unknown]

NARRATIVE: CASE EVENT DATE: 20250228
